FAERS Safety Report 4817032-1 (Version None)
Quarter: 2005Q4

REPORT INFORMATION
  Report Type: 
  Country: None (occurrence: None)
  Receive Date: 20051101
  Receipt Date: 20051025
  Transmission Date: 20060501
  Serious: Yes (Death, Life-Threatening)
  Sender: FDA-Public Use
  Company Number: GB-GLAXOSMITHKLINE-B0398400A

PATIENT
  Age: 76 Year
  Sex: Male

DRUGS (9)
  1. ROSIGLITAZONE [Suspect]
     Indication: DIABETES MELLITUS
     Dosage: 4MG UNKNOWN
     Route: 048
     Dates: start: 20050323, end: 20050403
  2. FRUSEMIDE [Concomitant]
     Dosage: 40MG PER DAY
     Route: 048
  3. DIAZEPAM [Concomitant]
     Dosage: 2MG PER DAY
     Route: 065
  4. AMITRIPTYLINE HCL [Concomitant]
     Dosage: 50MG PER DAY
     Route: 065
  5. DIHYDROCODEINE [Concomitant]
     Dosage: 30MG TWICE PER DAY
     Route: 065
  6. METFORMIN [Concomitant]
     Dosage: 1G TWICE PER DAY
     Route: 065
  7. ASPIRIN [Concomitant]
     Dosage: 75MG PER DAY
     Route: 065
  8. ATORVASTATIN CALCIUM [Concomitant]
     Dosage: 20MG PER DAY
     Route: 065
  9. FERROUS SULFATE TAB [Concomitant]
     Dosage: 200MG TWICE PER DAY
     Route: 065

REACTIONS (4)
  - CHOLESTASIS [None]
  - HEPATIC FAILURE [None]
  - HEPATIC NECROSIS [None]
  - SEPSIS [None]
